FAERS Safety Report 14455773 (Version 3)
Quarter: 2018Q2

REPORT INFORMATION
  Report Type: Spontaneous
  Country: HU (occurrence: HU)
  Receive Date: 20180130
  Receipt Date: 20180419
  Transmission Date: 20180711
  Serious: Yes (Hospitalization, Other)
  Sender: FDA-Public Use
  Company Number: HU-009507513-1801HUN010669

PATIENT
  Sex: Female

DRUGS (5)
  1. KEYTRUDA [Suspect]
     Active Substance: PEMBROLIZUMAB
     Indication: METASTATIC MALIGNANT MELANOMA
     Dosage: 2MG/BODY WEIGHT KG , EVERY THIRD WEEK
     Dates: start: 20150527, end: 20151105
  2. FUROSEMIDE. [Concomitant]
     Active Substance: FUROSEMIDE
     Dosage: 1 X40 MG, 40 MG/DAY IN THE MORNING
  3. GLYCERIN. [Concomitant]
     Active Substance: GLYCERIN
     Dosage: 3X1 DL, 1 DL 3 LIMES A DAY
     Route: 048
  4. PANTOPRAZOLE [Concomitant]
     Active Substance: PANTOPRAZOLE
     Dosage: 2X40 MG, 40MG TWICE A DAY
     Route: 048
  5. KALDYUM [Concomitant]
     Active Substance: POTASSIUM CHLORIDE
     Dosage: 1 X600 MG, 600 MG ONCE A DAY

REACTIONS (5)
  - Tubulointerstitial nephritis [Recovered/Resolved]
  - Headache [Recovered/Resolved]
  - Myalgia [Recovered/Resolved]
  - Cough [Recovered/Resolved]
  - Pyrexia [Recovered/Resolved]

NARRATIVE: CASE EVENT DATE: 201511
